FAERS Safety Report 17093160 (Version 1)
Quarter: 2019Q4

REPORT INFORMATION
  Report Type: Report from Study
  Country: US (occurrence: US)
  Receive Date: 20191129
  Receipt Date: 20191129
  Transmission Date: 20200122
  Serious: Yes (Other)
  Sender: FDA-Public Use
  Company Number: US-ROCHE-2459488

PATIENT
  Age: 70 Year
  Sex: Female

DRUGS (1)
  1. XOLAIR [Suspect]
     Active Substance: OMALIZUMAB
     Indication: ASTHMA
     Dosage: VIAL
     Route: 065
     Dates: start: 2009, end: 201902

REACTIONS (4)
  - Off label use [Unknown]
  - Pharyngeal swelling [Recovered/Resolved]
  - Anaphylactic reaction [Recovered/Resolved]
  - Intentional product use issue [Unknown]

NARRATIVE: CASE EVENT DATE: 201911
